FAERS Safety Report 15540740 (Version 18)
Quarter: 2019Q3

REPORT INFORMATION
  Report Type: Report from Study
  Country: CN (occurrence: CN)
  Receive Date: 20181023
  Receipt Date: 20190816
  Transmission Date: 20191004
  Serious: Yes (Hospitalization)
  Sender: FDA-Public Use
  Company Number: CN-ROCHE-2201634

PATIENT
  Age: 61 Year
  Sex: Female
  Weight: 58 kg

DRUGS (56)
  1. CARBOPLATIN. [Suspect]
     Active Substance: CARBOPLATIN
     Dosage: TARGET AREA UNDER THE CURVE (AUC) OF 6  (MG/ML/MIN) ?ON 29/OCT/2018, SHE RECIVED HER MOST RECENT DOS
     Route: 042
     Dates: start: 20181029
  2. PALONOSETRON HYDROCHLORIDE. [Concomitant]
     Active Substance: PALONOSETRON HYDROCHLORIDE
     Indication: PROPHYLAXIS OF NAUSEA AND VOMITING
     Route: 065
     Dates: start: 20180929, end: 20181003
  3. DEXAMETHASONE. [Concomitant]
     Active Substance: DEXAMETHASONE
     Dosage: DOSE-19.5 (UNIT NOT REPORTED)
     Route: 048
     Dates: start: 20181028, end: 20181029
  4. PROMETHAZINE [Concomitant]
     Active Substance: PROMETHAZINE HYDROCHLORIDE
     Route: 065
     Dates: start: 20190204, end: 20190204
  5. PROMETHAZINE HYDROCHLORIDE. [Concomitant]
     Active Substance: PROMETHAZINE HYDROCHLORIDE
     Route: 065
     Dates: start: 20181018, end: 20181018
  6. EPHEDRA [Concomitant]
     Active Substance: EPHEDRA
     Route: 065
     Dates: start: 20190702
  7. RECOMBINANT HUMAN THROMBOPOIETIN [Concomitant]
     Active Substance: THROMBOPOIETIN
     Route: 065
     Dates: start: 20181001, end: 20181101
  8. PALONOSETRON HYDROCHLORIDE. [Concomitant]
     Active Substance: PALONOSETRON HYDROCHLORIDE
     Route: 065
     Dates: start: 20190110, end: 20190110
  9. OMEPRAZOLE SODIUM [Concomitant]
     Active Substance: OMEPRAZOLE SODIUM
     Route: 065
     Dates: start: 20180929, end: 20181101
  10. OMEPRAZOLE SODIUM [Concomitant]
     Active Substance: OMEPRAZOLE SODIUM
     Route: 065
     Dates: start: 20181029, end: 20181101
  11. PROMETHAZINE [Concomitant]
     Active Substance: PROMETHAZINE HYDROCHLORIDE
     Route: 065
     Dates: start: 20181018, end: 20181018
  12. BUPLEURUM [BUPLEURUM FALCATUM] [Concomitant]
     Route: 065
     Dates: start: 20190702
  13. CODONOPSIS [Concomitant]
     Route: 065
     Dates: start: 20190702
  14. PACLITAXEL. [Suspect]
     Active Substance: PACLITAXEL
     Indication: OVARIAN CANCER STAGE III
     Dosage: ON 30/SEP/2018, SHE RECEIVED HER MOST RECENT DOSE 270.6MG OF PACLITAXEL PRIOR TO FIRST EPISODE OF MY
     Route: 042
     Dates: start: 20180930
  15. BEVACIZUMAB. [Suspect]
     Active Substance: BEVACIZUMAB
     Indication: OVARIAN CANCER STAGE III
     Dosage: ON 29/OCT/2018, SHE RECEIVED HER MOST RECENT DOSE OF BEVACIZUMAB PRIOR TO THE SECOND EPISODE OF MYEL
     Route: 042
     Dates: start: 20181029
  16. CALAMINE [Concomitant]
     Active Substance: CALAMINE\FERRIC OXIDE RED\ZINC OXIDE
     Indication: RASH
     Route: 065
     Dates: start: 20181111, end: 20181114
  17. CALAMINE [Concomitant]
     Active Substance: CALAMINE\FERRIC OXIDE RED\ZINC OXIDE
     Route: 065
     Dates: start: 20181011, end: 20181014
  18. GADOPENTETATE DIMEGLUMINE. [Concomitant]
     Active Substance: GADOPENTETATE DIMEGLUMINE
     Route: 065
     Dates: start: 20181024, end: 20181024
  19. RECOMBINANT HUMAN THROMBOPOIETIN [Concomitant]
     Active Substance: THROMBOPOIETIN
     Indication: PLATELET COUNT INCREASED
     Route: 065
     Dates: start: 20180926, end: 20180928
  20. RECOMBINANT HUMAN THROMBOPOIETIN [Concomitant]
     Active Substance: THROMBOPOIETIN
     Route: 065
     Dates: start: 20181015, end: 20181022
  21. DEXAMETHASONE. [Concomitant]
     Active Substance: DEXAMETHASONE
     Route: 055
     Dates: start: 20181018, end: 20181018
  22. DIPHENHYDRAMINE HYDROCHLORIDE. [Concomitant]
     Active Substance: DIPHENHYDRAMINE HYDROCHLORIDE
     Indication: ALLERGY PROPHYLAXIS
     Route: 065
     Dates: start: 20180930, end: 20180930
  23. OMEPRAZOLE SODIUM [Concomitant]
     Active Substance: OMEPRAZOLE SODIUM
     Route: 065
     Dates: start: 20180929, end: 20180930
  24. LIDOCAINE HYDROCHLORIDE. [Concomitant]
     Active Substance: LIDOCAINE HYDROCHLORIDE
     Indication: LOCAL ANAESTHESIA
     Route: 065
     Dates: start: 20180925, end: 20180925
  25. PACLITAXEL. [Suspect]
     Active Substance: PACLITAXEL
     Dosage: ON 29/OCT/2018, SHE RECEIVED HER MOST RECENT DOSE 216.48 MG OF PACLITAXEL PRIOR TO SECOND EPISODE OF
     Route: 042
     Dates: start: 20181029
  26. CIMETIDINE [Concomitant]
     Active Substance: CIMETIDINE
     Route: 065
     Dates: start: 20190111, end: 20190111
  27. CIMETIDINE [Concomitant]
     Active Substance: CIMETIDINE
     Route: 065
     Dates: start: 20181029, end: 20181029
  28. DIPHENHYDRAMINE HYDROCHLORIDE. [Concomitant]
     Active Substance: DIPHENHYDRAMINE HYDROCHLORIDE
     Route: 065
     Dates: start: 20190111, end: 20190111
  29. GLUCOSE [Concomitant]
     Active Substance: DEXTROSE
     Indication: NUTRITIONAL SUPPLEMENTATION
     Route: 065
     Dates: start: 20181029, end: 20181101
  30. PROMETHAZINE HYDROCHLORIDE. [Concomitant]
     Active Substance: PROMETHAZINE HYDROCHLORIDE
     Route: 065
     Dates: start: 20181016, end: 20181016
  31. REHMANNIA [Concomitant]
     Route: 065
     Dates: start: 20190702
  32. LICORICE [GLYCYRRHIZA GLABRA] [Concomitant]
     Active Substance: GLYCYRRHIZA GLABRA\HERBALS
     Route: 065
     Dates: start: 20190702
  33. GLYCYRRHIZIN [GLYCYRRHIZA GLABRA] [Concomitant]
     Route: 065
     Dates: start: 20181111, end: 20181118
  34. LORATADINE. [Concomitant]
     Active Substance: LORATADINE
     Indication: RASH
     Route: 065
     Dates: start: 20180924, end: 20180926
  35. LORATADINE. [Concomitant]
     Active Substance: LORATADINE
     Route: 065
     Dates: start: 20181011, end: 20181014
  36. RECOMBINANT HUMAN THROMBOPOIETIN [Concomitant]
     Active Substance: THROMBOPOIETIN
     Route: 065
     Dates: start: 20181111, end: 20181117
  37. COMPOUND SODIUM CHLORIDE [CALCIUM CHLORIDE;POTASSIUM CHLORIDE;SODIUM C [Concomitant]
     Indication: NUTRITIONAL SUPPLEMENTATION
     Route: 065
     Dates: start: 20181029, end: 20181101
  38. SODIUM CHLORIDE. [Concomitant]
     Active Substance: SODIUM CHLORIDE
     Indication: NUTRITIONAL SUPPLEMENTATION
     Route: 065
     Dates: start: 20180929, end: 20181003
  39. DEXAMETHASONE. [Concomitant]
     Active Substance: DEXAMETHASONE
     Indication: ALLERGY PROPHYLAXIS
     Route: 065
     Dates: start: 20180929, end: 20180930
  40. DEXAMETHASONE. [Concomitant]
     Active Substance: DEXAMETHASONE
     Route: 055
     Dates: start: 20181016, end: 20181016
  41. PALONOSETRON. [Concomitant]
     Active Substance: PALONOSETRON HYDROCHLORIDE
     Indication: VOMITING
     Route: 065
     Dates: start: 20181029, end: 20181101
  42. PROMETHAZINE [Concomitant]
     Active Substance: PROMETHAZINE HYDROCHLORIDE
     Route: 065
     Dates: start: 20181016, end: 20181016
  43. PANTOPRAZOLE [Concomitant]
     Active Substance: PANTOPRAZOLE
     Route: 065
     Dates: start: 20181112, end: 20181118
  44. ATEZOLIZUMAB. [Suspect]
     Active Substance: ATEZOLIZUMAB
     Indication: OVARIAN CANCER STAGE III
     Dosage: DATE OF MOST RECENT DOSE 1200 MG OF ATEZOLIZUMAB PRIOR TO SERIOUS ADVERSE EVENT 30/SEP/2018.
     Route: 042
     Dates: start: 20180930
  45. PALONOSETRON HYDROCHLORIDE. [Concomitant]
     Active Substance: PALONOSETRON HYDROCHLORIDE
     Route: 065
     Dates: start: 20181029, end: 20181101
  46. DEXAMETHASONE. [Concomitant]
     Active Substance: DEXAMETHASONE
     Route: 065
     Dates: start: 20190130, end: 20190130
  47. DIPHENHYDRAMINE HYDROCHLORIDE. [Concomitant]
     Active Substance: DIPHENHYDRAMINE HYDROCHLORIDE
     Route: 065
     Dates: start: 20181029, end: 20181029
  48. CARBOPLATIN. [Suspect]
     Active Substance: CARBOPLATIN
     Indication: OVARIAN CANCER STAGE III
     Dosage: ON 30/SEP/2018, SHE RECIVED HER MOST RECENT DOSE 732.3 MG OF CARBOPLATIN PRIOR TO FIRST EPISODE OF M
     Route: 042
     Dates: start: 20180930
  49. COMPOUND SODIUM CHLORIDE [CALCIUM CHLORIDE;POTASSIUM CHLORIDE;SODIUM C [Concomitant]
     Route: 065
     Dates: start: 20180929, end: 20181003
  50. SODIUM CHLORIDE. [Concomitant]
     Active Substance: SODIUM CHLORIDE
     Route: 065
     Dates: start: 20181029, end: 20181029
  51. DEXAMETHASONE. [Concomitant]
     Active Substance: DEXAMETHASONE
     Route: 048
     Dates: start: 20181029, end: 20181030
  52. DEXAMETHASONE. [Concomitant]
     Active Substance: DEXAMETHASONE
     Route: 065
     Dates: start: 20190204, end: 20190204
  53. CIMETIDINE [Concomitant]
     Active Substance: CIMETIDINE
     Route: 065
     Dates: start: 20180930, end: 20180930
  54. PROMETHAZINE [Concomitant]
     Active Substance: PROMETHAZINE HYDROCHLORIDE
     Route: 065
     Dates: start: 20190130, end: 20190130
  55. IODIXANOL. [Concomitant]
     Active Substance: IODIXANOL
     Route: 065
     Dates: start: 20190203, end: 20190203
  56. CINNAMON [CINNAMOMUM CASSIA] [Concomitant]
     Route: 065
     Dates: start: 20190702

REACTIONS (2)
  - Platelet count decreased [Recovered/Resolved]
  - Bone marrow failure [Recovering/Resolving]

NARRATIVE: CASE EVENT DATE: 20181011
